FAERS Safety Report 17206375 (Version 1)
Quarter: 2019Q4

REPORT INFORMATION
  Report Type: Spontaneous
  Country: US (occurrence: US)
  Receive Date: 20191205
  Receipt Date: 20191205
  Transmission Date: 20200122
  Serious: No
  Sender: FDA-Public Use
  Company Number: None

PATIENT
  Age: 42 Year
  Sex: Female

DRUGS (2)
  1. TYKERB [Suspect]
     Active Substance: LAPATINIB DITOSYLATE
     Route: 048
     Dates: start: 2019, end: 20191205
  2. XELODA [Concomitant]
     Active Substance: CAPECITABINE

REACTIONS (2)
  - Malignant neoplasm progression [None]
  - Therapy change [None]

NARRATIVE: CASE EVENT DATE: 20191205
